FAERS Safety Report 5920320-9 (Version None)
Quarter: 2008Q4

REPORT INFORMATION
  Report Type: 
  Country: None (occurrence: None)
  Receive Date: 20081016
  Receipt Date: 20081007
  Transmission Date: 20090506
  Serious: Yes (Hospitalization)
  Sender: FDA-Public Use
  Company Number: PHHY2008JP21007

PATIENT
  Sex: Female
  Weight: 44 kg

DRUGS (2)
  1. ZOMETA [Suspect]
     Indication: METASTASES TO BONE
     Dosage: 4 MG, QMO
     Route: 042
     Dates: start: 20080529, end: 20080818
  2. AREDIA [Suspect]
     Indication: METASTASES TO BONE
     Dosage: 90 MG
     Route: 042
     Dates: start: 20060501, end: 20060501

REACTIONS (6)
  - BONE DISORDER [None]
  - C-REACTIVE PROTEIN INCREASED [None]
  - INFECTION [None]
  - OSTEOMYELITIS [None]
  - PAIN IN JAW [None]
  - TOOTH EXTRACTION [None]
